FAERS Safety Report 10022038 (Version 1)
Quarter: 2014Q1

REPORT INFORMATION
  Report Type: Not Available
  Country: GB (occurrence: GB)
  Receive Date: 20140319
  Receipt Date: 20140319
  Transmission Date: 20141002
  Serious: Yes (Life-Threatening, Hospitalization, Disabling, Other)
  Sender: FDA-Public Use
  Company Number: GB-PURDUE-USA-2014-0112183

PATIENT
  Age: 63 Year
  Sex: Male
  Weight: 80 kg

DRUGS (4)
  1. TRAMADOL (SIMILAR TO NDA 21-745) [Suspect]
     Indication: BACK PAIN
     Dosage: UNK, UNK
     Route: 048
     Dates: start: 201310, end: 201310
  2. TRAMADOL (SIMILAR TO NDA 21-745) [Suspect]
     Indication: PAIN IN EXTREMITY
  3. TRAMADOL (SIMILAR TO NDA 21-745) [Suspect]
     Indication: SCIATICA
  4. ORAMORPH [Concomitant]
     Indication: PRODUCT USED FOR UNKNOWN INDICATION

REACTIONS (7)
  - Dysphonia [Not Recovered/Not Resolved]
  - Aphonia [Not Recovered/Not Resolved]
  - Dysphagia [Not Recovered/Not Resolved]
  - Constipation [Recovered/Resolved]
  - Diarrhoea [Recovered/Resolved with Sequelae]
  - Vomiting [Recovered/Resolved with Sequelae]
  - Weight decreased [Not Recovered/Not Resolved]
